FAERS Safety Report 22318365 (Version 1)
Quarter: 2023Q2

REPORT INFORMATION
  Report Type: Spontaneous
  Country: US (occurrence: US)
  Receive Date: 20230515
  Receipt Date: 20230515
  Transmission Date: 20230721
  Serious: No
  Sender: FDA-Public Use
  Company Number: US-002147023-NVSC2023US110118

PATIENT
  Age: 72 Year
  Sex: Male
  Weight: 102.5 kg

DRUGS (11)
  1. CLOFAZIMINE [Suspect]
     Active Substance: CLOFAZIMINE
     Indication: Mycobacterium chelonae infection
     Dosage: 2 DOSAGE FORM, QD (50 MG, TABLET)
     Route: 048
     Dates: start: 20200210, end: 20200506
  2. CLOFAZIMINE [Suspect]
     Active Substance: CLOFAZIMINE
     Dosage: 2 DOSAGE FORM, QD (50 MG, TABLET)
     Route: 048
     Dates: start: 20200507, end: 20200827
  3. CLOFAZIMINE [Suspect]
     Active Substance: CLOFAZIMINE
     Dosage: 2 DOSAGE FORM, QD (50 MG, TABLET)
     Route: 048
     Dates: start: 20200828, end: 20201018
  4. CLOFAZIMINE [Suspect]
     Active Substance: CLOFAZIMINE
     Dosage: 2 DOSAGE FORM, QD (50 MG, TABLET)
     Route: 048
     Dates: start: 20200828
  5. AZITHROMYCIN [Concomitant]
     Active Substance: AZITHROMYCIN
     Indication: Mycobacterium chelonae infection
     Dosage: 500 MG, QD
     Route: 048
     Dates: start: 20190930
  6. LINEZOLID [Concomitant]
     Active Substance: LINEZOLID
     Indication: Mycobacterium chelonae infection
     Dosage: 600 MG, QD
     Route: 048
     Dates: start: 20190930
  7. ETANERCEPT [Concomitant]
     Active Substance: ETANERCEPT
     Indication: Rheumatoid arthritis
     Dosage: 50 MILLIGRAM PER MILLILITRE, QW
     Route: 058
     Dates: start: 201807
  8. PRAVASTATIN [Concomitant]
     Active Substance: PRAVASTATIN
     Indication: Hyperlipidaemia
     Dosage: 40 MG, QHS
     Route: 048
     Dates: start: 2017
  9. METFORMIN [Concomitant]
     Active Substance: METFORMIN HYDROCHLORIDE
     Indication: Diabetes mellitus
     Dosage: 2 DOSAGE FORM, BID
     Route: 048
     Dates: start: 2017
  10. SILDENAFIL [Concomitant]
     Active Substance: SILDENAFIL
     Indication: Erectile dysfunction
     Dosage: 100 MG, PRN
     Route: 048
     Dates: start: 2019
  11. LISINOPRIL [Concomitant]
     Active Substance: LISINOPRIL
     Indication: Hypertension
     Dosage: 40 MG, QD
     Route: 048
     Dates: start: 2018

REACTIONS (5)
  - Haematuria [Recovered/Resolved]
  - Tinea infection [Recovered/Resolved]
  - Skin hyperpigmentation [Recovered/Resolved]
  - Pruritus [Recovered/Resolved]
  - Pruritus [Recovered/Resolved]

NARRATIVE: CASE EVENT DATE: 20200410
